FAERS Safety Report 8987577 (Version 1)
Quarter: 2012Q4

REPORT INFORMATION
  Report Type: 
  Country: US (occurrence: US)
  Receive Date: 20121227
  Receipt Date: 20121227
  Transmission Date: 20130627
  Serious: Yes (Other)
  Sender: FDA-Public Use
  Company Number: US-BAYER-2012-134495

PATIENT
  Age: 21 Year
  Sex: Male
  Weight: 72.56 kg

DRUGS (1)
  1. ALEVE GELCAP [Suspect]
     Indication: GENERAL BODY PAIN
     Dosage: 2 DF, QD
     Route: 048
     Dates: start: 20121211, end: 20121213

REACTIONS (1)
  - Dysuria [Not Recovered/Not Resolved]
